FAERS Safety Report 8789092 (Version 3)
Quarter: 2013Q2

REPORT INFORMATION
  Report Type: Spontaneous
  Country: US (occurrence: US)
  Receive Date: 20120917
  Receipt Date: 20130508
  Transmission Date: 20140414
  Serious: No
  Sender: FDA-Public Use
  Company Number: US-009507513-1208USA000087

PATIENT
  Age: 61 Year
  Sex: Female
  Weight: 63.49 kg

DRUGS (7)
  1. VICTRELIS [Suspect]
     Dosage: 4 DF, TID
     Route: 048
     Dates: start: 201207
  2. REBETOL [Suspect]
     Route: 048
  3. PEGASYS [Suspect]
  4. CYMBALTA [Concomitant]
  5. LEVOTHYROXINE SODIUM [Concomitant]
  6. METOPROLOL [Concomitant]
  7. RESTORIL (CHLORMEZANONE) [Concomitant]

REACTIONS (6)
  - Infrequent bowel movements [Unknown]
  - Anger [Recovered/Resolved]
  - Nausea [Unknown]
  - Abdominal discomfort [Unknown]
  - Constipation [Unknown]
  - Haemorrhoids [Recovered/Resolved]
